FAERS Safety Report 8563533-2 (Version None)
Quarter: 2012Q3

REPORT INFORMATION
  Report Type: 
  Country: None (occurrence: None)
  Receive Date: 20120802
  Receipt Date: 20120731
  Transmission Date: 20120928
  Serious: Yes (Life-Threatening, Hospitalization)
  Sender: FDA-Public Use
  Company Number: SI-AMGEN-SVNSP2012047984

PATIENT
  Age: 76 Year
  Sex: Female

DRUGS (7)
  1. ASPIRIN [Concomitant]
  2. NOLPAZA [Concomitant]
  3. CALCIUM [Concomitant]
  4. VITAMIN D [Concomitant]
  5. PROLIA [Suspect]
     Indication: OSTEOPOROSIS
     Dosage: 60 MG, Q6MO
     Route: 058
     Dates: start: 20120301
  6. MICARDIS [Concomitant]
  7. BISOPROLOL FUMARATE [Concomitant]

REACTIONS (5)
  - AMNESIA [None]
  - THROMBOTIC THROMBOCYTOPENIC PURPURA [None]
  - COMA [None]
  - EPILEPSY [None]
  - MOTOR DYSFUNCTION [None]
